FAERS Safety Report 8333690-1 (Version None)
Quarter: 2012Q2

REPORT INFORMATION
  Report Type: 
  Country: None (occurrence: None)
  Receive Date: 20120503
  Receipt Date: 20120425
  Transmission Date: 20120825
  Serious: No
  Sender: FDA-Public Use
  Company Number: US-BAYER-2012-041040

PATIENT
  Sex: Female

DRUGS (5)
  1. ANTIHYPERTENSIVES [Concomitant]
     Indication: HYPERTENSION
  2. MIRENA [Suspect]
     Indication: CONTRACEPTION
     Dosage: 20 MCG/24HR, CONT
     Route: 015
     Dates: end: 20120301
  3. ABILIFY [Concomitant]
  4. XANAX [Concomitant]
  5. LEXAPRO [Concomitant]

REACTIONS (8)
  - INSOMNIA [None]
  - LIBIDO DECREASED [None]
  - BACK PAIN [None]
  - HEADACHE [None]
  - PARAESTHESIA [None]
  - NAUSEA [None]
  - JOINT INSTABILITY [None]
  - HOT FLUSH [None]
